APPROVED DRUG PRODUCT: SENSORCAINE
Active Ingredient: BUPIVACAINE HYDROCHLORIDE
Strength: 0.75%
Dosage Form/Route: INJECTABLE;SPINAL
Application: A071202 | Product #001
Applicant: FRESENIUS KABI USA LLC
Approved: Apr 15, 1987 | RLD: No | RS: No | Type: DISCN